FAERS Safety Report 6458191-7 (Version None)
Quarter: 2009Q4

REPORT INFORMATION
  Report Type: 
  Country: None (occurrence: None)
  Receive Date: 20091125
  Receipt Date: 20091112
  Transmission Date: 20100525
  Serious: Yes (Hospitalization)
  Sender: FDA-Public Use
  Company Number: IT-GENENTECH-294530

PATIENT
  Sex: Male

DRUGS (6)
  1. MABTHERA [Suspect]
     Dosage: 375 MG/M2, UNK
     Route: 042
     Dates: start: 20090812, end: 20090902
  2. ENDOXAN [Suspect]
     Dosage: FREQUENCY: CYCLE
     Route: 042
     Dates: start: 20090813, end: 20090903
  3. FARMORUBICINA [Suspect]
     Dosage: FREQUENCY: CYCLE
     Route: 042
     Dates: start: 20090813, end: 20090903
  4. VINCRISTINA [Suspect]
     Dosage: FREQUENCY: CYCLE
     Route: 042
     Dates: start: 20090813, end: 20090903
  5. LANSOPRAZOLE [Concomitant]
     Dosage: 30 MG, UNK
     Route: 048
     Dates: start: 20090812, end: 20090911
  6. DELTACORTENE [Concomitant]
     Dosage: 100 MG, UNK
     Route: 048
     Dates: start: 20090813, end: 20090907

REACTIONS (3)
  - BALANITIS [None]
  - FEBRILE NEUTROPENIA [None]
  - STOMATITIS [None]
